FAERS Safety Report 8850013 (Version 5)
Quarter: 2012Q4

REPORT INFORMATION
  Report Type: Report from Study
  Country: DE (occurrence: DE)
  Receive Date: 20121019
  Receipt Date: 20121212
  Transmission Date: 20130627
  Serious: Yes (Life-Threatening, Hospitalization)
  Sender: FDA-Public Use
  Company Number: DE-AMGEN-DEUNI2012066454

PATIENT
  Age: 63 Year
  Sex: Female

DRUGS (14)
  1. DENOSUMAB [Suspect]
     Indication: METASTASES TO BONE
     Dosage: 120 mg, q4wk
     Route: 065
     Dates: start: 20120612
  2. HERCEPTIN [Concomitant]
     Dosage: 8 mg/kg, UNK
     Dates: start: 20121009
  3. INNOHEP [Concomitant]
     Dosage: 0.5 UNK, UNK
     Route: 058
  4. ARIXTRA [Concomitant]
  5. FENTANYL [Concomitant]
     Dosage: 12 mug, UNK
  6. LYRICA [Concomitant]
  7. OSSOFORTIN [Concomitant]
     Dosage: UNK
  8. PANTOZOL [Concomitant]
  9. CAPTOHEXAL [Concomitant]
  10. HCT [Concomitant]
     Dosage: UNK
  11. LETROZOL [Concomitant]
     Dosage: UNK UNK, bid
  12. MOVICOL [Concomitant]
     Dosage: UNK ml, UNK
  13. EPIRUBICIN [Concomitant]
     Indication: BREAST CANCER
     Dosage: UNK
     Dates: start: 201204, end: 201208
  14. CYCLOPHOSPHAMIDE [Concomitant]
     Indication: BREAST CANCER
     Dosage: UNK
     Dates: start: 201204, end: 201208

REACTIONS (2)
  - Thrombocytopenia [Recovered/Resolved]
  - Epistaxis [Recovered/Resolved]
